FAERS Safety Report 8709055 (Version 2)
Quarter: 2013Q1

REPORT INFORMATION
  Report Type: Spontaneous
  Country: US (occurrence: US)
  Receive Date: 20120806
  Receipt Date: 20130204
  Transmission Date: 20140127
  Serious: Yes (Other)
  Sender: FDA-Public Use
  Company Number: US-ROCHE-GNE291613

PATIENT
  Sex: Male

DRUGS (2)
  1. XOLAIR [Suspect]
     Indication: ASTHMA
     Dosage: UNK
     Route: 065
  2. XOLAIR [Suspect]
     Dosage: 2 UNK, UNK
     Route: 065
     Dates: start: 2009

REACTIONS (2)
  - Hypersensitivity [Unknown]
  - Sinusitis [Unknown]
